FAERS Safety Report 5451349-5 (Version None)
Quarter: 2007Q3

REPORT INFORMATION
  Report Type: 
  Country: None (occurrence: None)
  Receive Date: 20070913
  Receipt Date: 20070910
  Transmission Date: 20080115
  Serious: Yes (Death)
  Sender: FDA-Public Use
  Company Number: PH-ASTRAZENECA-2007AP05617

PATIENT
  Age: 2 Year
  Sex: Male
  Weight: 10 kg

DRUGS (7)
  1. MERONEM [Suspect]
     Indication: PNEUMONIA
     Dosage: SOURCE: HOSPITAL PHARMACY
     Route: 042
  2. MERONEM [Suspect]
     Dosage: TWO DOSES ADMINISTERED
     Route: 042
  3. MERONEM [Suspect]
     Dosage: SOURCE: HOSPITAL PHARMACY
     Route: 042
  4. CEFTRIAXONE [Concomitant]
  5. SALBUTAMOL [Concomitant]
     Indication: WHEEZING
  6. CLARITHROMYCIN [Concomitant]
     Indication: PNEUMONIA PRIMARY ATYPICAL
  7. IPRATROPIUM BROMIDE AND ALBUTEROL SULFATE [Concomitant]

REACTIONS (2)
  - MULTI-ORGAN FAILURE [None]
  - POOR QUALITY DRUG ADMINISTERED [None]
